FAERS Safety Report 8419703-7 (Version None)
Quarter: 2012Q2

REPORT INFORMATION
  Report Type: 
  Country: None (occurrence: None)
  Receive Date: 20120607
  Receipt Date: 20120529
  Transmission Date: 20120825
  Serious: Yes (Death)
  Sender: FDA-Public Use
  Company Number: US-ACTELION-A-NJ2012-66472

PATIENT

DRUGS (4)
  1. REMICADE [Concomitant]
  2. TRACLEER [Suspect]
     Indication: PULMONARY ARTERIAL HYPERTENSION
     Dosage: UNK
     Route: 048
     Dates: start: 20090217
  3. SILDENAFIL [Concomitant]
  4. OXYGEN [Concomitant]

REACTIONS (1)
  - DEATH [None]
